FAERS Safety Report 4652469-5 (Version None)
Quarter: 2005Q2

REPORT INFORMATION
  Report Type: 
  Country: None (occurrence: None)
  Receive Date: 20050504
  Receipt Date: 20050428
  Transmission Date: 20051028
  Serious: Yes (Life-Threatening, Hospitalization)
  Sender: FDA-Public Use
  Company Number: PHHO2005US06882

PATIENT
  Age: 53 Year
  Sex: Male
  Weight: 84 kg

DRUGS (9)
  1. MYCOPHENOLATE MOFETIL [Suspect]
     Indication: HEART TRANSPLANT
     Dosage: CODE NOT BROKEN
     Route: 048
     Dates: start: 20020630, end: 20020925
  2. MYCOPHENOLATE MOFETIL [Suspect]
     Dosage: CODE NOT BROKEN
     Route: 048
     Dates: start: 20021016
  3. NEORAL [Suspect]
     Indication: HEART TRANSPLANT
     Dosage: NOT REPORTED
     Route: 048
  4. PREDNISONE TAB [Suspect]
     Indication: HEART TRANSPLANT
     Dosage: 25 MG / DAY
     Route: 048
  5. PREDNISONE TAB [Suspect]
     Dosage: 17.5 MG / DAY
     Route: 048
  6. EPOETIN ALFA [Concomitant]
  7. VALGANCICLOVIR [Concomitant]
  8. LISINOPRIL [Concomitant]
  9. SEPTRA [Concomitant]

REACTIONS (11)
  - BLOOD CREATININE INCREASED [None]
  - BLOOD PRESSURE INCREASED [None]
  - FATIGUE [None]
  - HEADACHE [None]
  - HEART TRANSPLANT REJECTION [None]
  - LEUKOPENIA [None]
  - MYALGIA [None]
  - NEUTROPENIA [None]
  - POST PROCEDURAL CELLULITIS [None]
  - PYREXIA [None]
  - SKIN LESION [None]
